FAERS Safety Report 17508799 (Version 1)
Quarter: 2020Q1

REPORT INFORMATION
  Report Type: Spontaneous
  Country: US (occurrence: US)
  Receive Date: 20200225
  Receipt Date: 20200225
  Transmission Date: 20200409
  Serious: Yes (Hospitalization)
  Sender: FDA-Public Use
  Company Number: None

PATIENT
  Age: 60 Year
  Sex: Female
  Weight: 73.1 kg

DRUGS (2)
  1. TAXOL [Suspect]
     Active Substance: PACLITAXEL
     Dates: start: 20200117
  2. CARBOPLATIN. [Suspect]
     Active Substance: CARBOPLATIN
     Dates: end: 20200117

REACTIONS (6)
  - Fatigue [None]
  - Asthenia [None]
  - Headache [None]
  - Decreased appetite [None]
  - Blood glucose increased [None]
  - Loss of personal independence in daily activities [None]

NARRATIVE: CASE EVENT DATE: 20200204
